FAERS Safety Report 16084740 (Version 1)
Quarter: 2019Q2

REPORT INFORMATION
  Report Type: Spontaneous
  Country: US (occurrence: US)
  Receive Date: 20190317
  Receipt Date: 20190317
  Transmission Date: 20190711
  Serious: Yes (Other)
  Sender: FDA-Public Use
  Company Number: None

PATIENT
  Age: 53 Year
  Sex: Female
  Weight: 49.5 kg

DRUGS (1)
  1. XYZAL ALLERGY 24HR [Suspect]
     Active Substance: LEVOCETIRIZINE DIHYDROCHLORIDE
     Indication: HYPERSENSITIVITY
     Dosage: ?          QUANTITY:1 TABLET(S);?
     Route: 048
     Dates: start: 20190315, end: 20190315

REACTIONS (12)
  - Tremor [None]
  - Vision blurred [None]
  - Hyperhidrosis [None]
  - Nausea [None]
  - Fear [None]
  - Bradyphrenia [None]
  - Slow response to stimuli [None]
  - Memory impairment [None]
  - Palpitations [None]
  - Dizziness [None]
  - Impaired driving ability [None]
  - Cold sweat [None]

NARRATIVE: CASE EVENT DATE: 20190315
